FAERS Safety Report 15608300 (Version 2)
Quarter: 2018Q4

REPORT INFORMATION
  Report Type: Spontaneous
  Country: US (occurrence: US)
  Receive Date: 20181112
  Receipt Date: 20181228
  Transmission Date: 20190205
  Serious: Yes (Other)
  Sender: FDA-Public Use
  Company Number: US-PFIZER INC-2018428399

PATIENT
  Age: 56 Year
  Sex: Female

DRUGS (2)
  1. HYDROCORTISONE. [Concomitant]
     Active Substance: HYDROCORTISONE
     Dosage: UNK UNK, 4X/DAY (7 1/2-8AM, 7 1/2-1PM, 5MCG-6PM, 2 1/2-BED)
     Dates: start: 20150720
  2. LIOTHYRONINE SODIUM. [Suspect]
     Active Substance: LIOTHYRONINE SODIUM
     Indication: HYPOTHYROIDISM
     Dosage: 25 UG, 4X/DAY
     Dates: start: 20150720

REACTIONS (5)
  - Asthenia [Unknown]
  - Crying [Unknown]
  - Helplessness [Unknown]
  - Product use issue [Unknown]
  - Suicidal behaviour [Recovered/Resolved]

NARRATIVE: CASE EVENT DATE: 20150720
